FAERS Safety Report 15108924 (Version 1)
Quarter: 2018Q3

REPORT INFORMATION
  Report Type: Spontaneous
  Country: FR (occurrence: FR)
  Receive Date: 20180705
  Receipt Date: 20180705
  Transmission Date: 20181010
  Serious: Yes (Life-Threatening, Hospitalization)
  Sender: FDA-Public Use
  Company Number: FR-ROCHE-2148948

PATIENT
  Age: 67 Year
  Sex: Female
  Weight: 68 kg

DRUGS (13)
  1. INEXIUM [Concomitant]
     Active Substance: ESOMEPRAZOLE
     Dosage: INEXIUM 40 MG, COMPRIME GASTRO?RESISTANT
     Route: 065
  2. METOJECT [Suspect]
     Active Substance: METHOTREXATE SODIUM
     Indication: RHEUMATOID ARTHRITIS
     Dosage: METOJECT 10 MG/ML, SOLUTION INJECTABLE EN SERINGUE PRE?RE...
     Route: 058
     Dates: start: 200909, end: 20160114
  3. KETOPROFENE [Concomitant]
     Active Substance: KETOPROFEN
     Route: 065
  4. FOSAVANCE [Concomitant]
     Active Substance: ALENDRONATE SODIUM\CHOLECALCIFEROL
     Dosage: FOSAVANCE, COMPRIME
     Route: 065
  5. OROCAL D3 [Concomitant]
     Active Substance: CALCIUM CARBONATE\CHOLECALCIFEROL
     Route: 065
  6. CORTANCYL [Suspect]
     Active Substance: PREDNISONE
     Indication: RHEUMATOID ARTHRITIS
     Dosage: CORTANCYL 5 MG, COMPRIME
     Route: 048
     Dates: start: 1996
  7. DAFALGAN [Concomitant]
     Active Substance: ACETAMINOPHEN
     Route: 065
  8. ROACTEMRA [Suspect]
     Active Substance: TOCILIZUMAB
     Indication: RHEUMATOID ARTHRITIS
     Dosage: ROACTEMRA 20 MG/ML, SOLUTION A DILUER POUR PERFUSION
     Route: 058
     Dates: start: 200910, end: 20160114
  9. SPECIAFOLDINE [Concomitant]
     Active Substance: FOLIC ACID
     Route: 065
  10. SPIRONOLACTONE. [Concomitant]
     Active Substance: SPIRONOLACTONE
     Route: 065
  11. LASILIX FAIBLE [Concomitant]
     Active Substance: FUROSEMIDE
     Dosage: LASILIX FAIBLE 20 MG, COMPRIME
     Route: 065
  12. FLUOXETINE [Concomitant]
     Active Substance: FLUOXETINE HYDROCHLORIDE
     Dosage: FLUOXETINE BASE
     Route: 065
  13. OXYCONTIN [Concomitant]
     Active Substance: OXYCODONE HYDROCHLORIDE
     Dosage: OXYCONTIN LP 60 MG, COMPRIME PELLICULE A LIBERATION PROLO...
     Route: 065

REACTIONS (3)
  - Respiratory distress [Recovered/Resolved]
  - Pneumocystis jirovecii pneumonia [Recovered/Resolved]
  - Superinfection [Recovered/Resolved]

NARRATIVE: CASE EVENT DATE: 20160116
